FAERS Safety Report 4830123-4 (Version None)
Quarter: 2005Q4

REPORT INFORMATION
  Report Type: 
  Country: None (occurrence: None)
  Receive Date: 20051117
  Receipt Date: 20051110
  Transmission Date: 20060501
  Serious: Yes (Hospitalization)
  Sender: FDA-Public Use
  Company Number: 2005PK02138

PATIENT
  Age: 26447 Day
  Sex: Female

DRUGS (2)
  1. ARIMIDEX [Suspect]
     Indication: BREAST CANCER
     Route: 048
     Dates: start: 20041015
  2. IBANDRONATE [Suspect]
     Indication: BREAST CANCER
     Route: 048
     Dates: start: 20041015

REACTIONS (2)
  - UTERINE DILATION AND CURETTAGE [None]
  - UTERINE HAEMORRHAGE [None]
